FAERS Safety Report 12276410 (Version 2)
Quarter: 2016Q2

REPORT INFORMATION
  Report Type: Report from Study
  Country: GB (occurrence: GB)
  Receive Date: 20160418
  Receipt Date: 20160505
  Transmission Date: 20160815
  Serious: Yes (Other)
  Sender: FDA-Public Use
  Company Number: GB-BRISTOL-MYERS SQUIBB COMPANY-BMS-2016-025501

PATIENT
  Sex: Female

DRUGS (1)
  1. IPILIMUMAB [Suspect]
     Active Substance: IPILIMUMAB
     Indication: MALIGNANT MELANOMA
     Dosage: UNK
     Route: 065
     Dates: start: 20151217

REACTIONS (2)
  - Eye swelling [Unknown]
  - Haemorrhage [Recovered/Resolved]
